FAERS Safety Report 13690294 (Version 1)
Quarter: 2017Q2

REPORT INFORMATION
  Report Type: Spontaneous
  Country: MX (occurrence: MX)
  Receive Date: 20170626
  Receipt Date: 20170626
  Transmission Date: 20170830
  Serious: Yes (Other)
  Sender: FDA-Public Use
  Company Number: MX-PFIZER INC-2017277129

PATIENT
  Age: 71 Year
  Sex: Male

DRUGS (3)
  1. TELMISARTAN. [Concomitant]
     Active Substance: TELMISARTAN
     Indication: BLOOD PRESSURE MEASUREMENT
     Dosage: UNK
  2. INSULIN [Concomitant]
     Active Substance: INSULIN NOS
     Dosage: UNK
  3. CELEBREX [Suspect]
     Active Substance: CELECOXIB
     Indication: ARTHRALGIA
     Dosage: UNK

REACTIONS (3)
  - Hypertension [Not Recovered/Not Resolved]
  - Hearing aid user [Not Recovered/Not Resolved]
  - Diabetes mellitus [Not Recovered/Not Resolved]
